FAERS Safety Report 7931689 (Version 15)
Quarter: 2014Q2

REPORT INFORMATION
  Report Type: Report from Study
  Country: CA (occurrence: CA)
  Receive Date: 20110505
  Receipt Date: 20140410
  Transmission Date: 20141212
  Serious: Yes (Life-Threatening, Other)
  Sender: FDA-Public Use
  Company Number: PHHY2010CA84378

PATIENT
  Age: 60 Year
  Sex: Female

DRUGS (6)
  1. SANDOSTATIN LAR [Suspect]
     Indication: DUMPING SYNDROME
     Dosage: 20 MG, EVERY THREE WEEKS
     Route: 030
     Dates: start: 20041120
  2. SANDOSTATIN LAR [Suspect]
     Indication: OFF LABEL USE
  3. LOSEC [Concomitant]
     Dosage: UNK UKN, UNK
  4. SYNTHROID [Concomitant]
     Dosage: UNK UKN, UNK
  5. FLEXERIL [Concomitant]
     Dosage: UNK UKN, UNK
  6. FIORINAL-C [Concomitant]
     Dosage: UNK UKN, UNK

REACTIONS (13)
  - Hypoglycaemia [Recovering/Resolving]
  - Urinary tract infection [Unknown]
  - Cystitis [Unknown]
  - Musculoskeletal stiffness [Recovering/Resolving]
  - Haemorrhoids [Unknown]
  - Asthenia [Unknown]
  - Burning sensation [Unknown]
  - Stress [Unknown]
  - Skin atrophy [Unknown]
  - Joint swelling [Recovered/Resolved]
  - Tenderness [Unknown]
  - Haemorrhage [Unknown]
  - Blood pressure increased [Unknown]
